FAERS Safety Report 22205285 (Version 1)
Quarter: 2023Q2

REPORT INFORMATION
  Report Type: Report from Study
  Country: US (occurrence: US)
  Receive Date: 20230413
  Receipt Date: 20230413
  Transmission Date: 20230722
  Serious: Yes (Other)
  Sender: FDA-Public Use
  Company Number: US-ABBVIE-4323495

PATIENT
  Sex: Female

DRUGS (1)
  1. HUMIRA [Suspect]
     Active Substance: ADALIMUMAB
     Indication: Ankylosing spondylitis
     Dosage: 40 MILLIGRAM CF
     Route: 058
     Dates: start: 2021, end: 202212

REACTIONS (10)
  - Back disorder [Unknown]
  - Diabetes mellitus [Recovering/Resolving]
  - General physical health deterioration [Unknown]
  - Drug ineffective [Not Recovered/Not Resolved]
  - Spondylitis [Unknown]
  - Arthralgia [Unknown]
  - Gastrointestinal disorder [Recovering/Resolving]
  - Unevaluable event [Unknown]
  - Pain in extremity [Unknown]
  - Drug interaction [Unknown]
